FAERS Safety Report 25235687 (Version 1)
Quarter: 2025Q2

REPORT INFORMATION
  Report Type: Report from Study
  Country: US (occurrence: US)
  Receive Date: 20250424
  Receipt Date: 20250424
  Transmission Date: 20250717
  Serious: Yes (Other)
  Sender: ABBVIE
  Company Number: US-ABBVIE-6244189

PATIENT
  Sex: Female

DRUGS (1)
  1. RINVOQ [Suspect]
     Active Substance: UPADACITINIB
     Indication: Product used for unknown indication
     Route: 048
     Dates: start: 20200908

REACTIONS (4)
  - Localised infection [Unknown]
  - Limb operation [Not Recovered/Not Resolved]
  - Foot deformity [Not Recovered/Not Resolved]
  - Shoulder operation [Not Recovered/Not Resolved]
